FAERS Safety Report 6709459-8 (Version None)
Quarter: 2010Q2

REPORT INFORMATION
  Report Type: 
  Country: None (occurrence: None)
  Receive Date: 20100503
  Receipt Date: 20100503
  Transmission Date: 20101027
  Serious: Yes (Other)
  Sender: FDA-Public Use
  Company Number: None

PATIENT
  Age: 72 Year
  Sex: Female
  Weight: 81.6475 kg

DRUGS (2)
  1. ACTONEL [Suspect]
     Indication: OSTEOPENIA
     Dosage: 150 MG TABLET ONCE A MONTH
     Dates: start: 20100420, end: 20100420
  2. BONIVA [Suspect]
     Indication: OSTEOPENIA
     Dosage: 150 MG TABLET ONCE A MONTH
     Dates: start: 20100220, end: 20100320

REACTIONS (6)
  - CHILLS [None]
  - DECREASED APPETITE [None]
  - DIARRHOEA [None]
  - FATIGUE [None]
  - IMPAIRED WORK ABILITY [None]
  - NAUSEA [None]
